FAERS Safety Report 18618570 (Version 3)
Quarter: 2021Q1

REPORT INFORMATION
  Report Type: Spontaneous
  Country: US (occurrence: US)
  Receive Date: 20201215
  Receipt Date: 20210208
  Transmission Date: 20210419
  Serious: Yes (Other)
  Sender: FDA-Public Use
  Company Number: US-PFIZER INC-2020491838

PATIENT
  Age: 57 Year
  Sex: Female
  Weight: 59.86 kg

DRUGS (4)
  1. CAPECITABINE. [Suspect]
     Active Substance: CAPECITABINE
     Indication: COLON CANCER
     Dosage: UNK UNK, EVERY 3 WEEKS (Q3WKS)
     Route: 042
     Dates: start: 20070417, end: 20070417
  2. CALCIUM FOLINATE [Suspect]
     Active Substance: LEUCOVORIN CALCIUM
     Indication: COLON CANCER
     Dosage: UNK UNK, CYCLIC (Q2WKS)
     Route: 042
     Dates: start: 200701, end: 20070417
  3. FLUOROURACIL. [Suspect]
     Active Substance: FLUOROURACIL
     Indication: COLON CANCER
     Dosage: UNK UNK, CYCLIC (Q2WKS)
     Route: 042
     Dates: start: 200701, end: 20070417
  4. OXALIPLATIN. [Suspect]
     Active Substance: OXALIPLATIN
     Indication: COLON CANCER
     Dosage: UNK UNK, CYCLIC (Q2WKS THEN Q3WKS)
     Route: 042
     Dates: start: 200701, end: 20070417

REACTIONS (2)
  - Anaphylactic reaction [Recovered/Resolved]
  - Dysaesthesia pharynx [Recovered/Resolved]

NARRATIVE: CASE EVENT DATE: 2007
